FAERS Safety Report 6990621-4 (Version None)
Quarter: 2010Q3

REPORT INFORMATION
  Report Type: 
  Country: None (occurrence: None)
  Receive Date: 20100916
  Receipt Date: 20100706
  Transmission Date: 20110219
  Serious: Yes (Other)
  Sender: FDA-Public Use
  Company Number: US-PFIZER INC-2010084317

PATIENT
  Sex: Female
  Weight: 59.864 kg

DRUGS (8)
  1. LYRICA [Suspect]
     Indication: FIBROMYALGIA
     Dosage: 75 MG, 2X/DAY
     Route: 048
     Dates: start: 20100101, end: 20100101
  2. GABAPENTIN [Suspect]
     Indication: FIBROMYALGIA
     Dosage: UNK
  3. CORTISONE [Suspect]
     Indication: ARTHRITIS
     Dosage: UNK
  4. TYLENOL W/ CODEINE [Suspect]
     Indication: PAIN
     Dosage: UNK
     Route: 048
  5. TRAZODONE [Concomitant]
     Indication: ARTHRITIS
     Dosage: 50 MG, 1X/DAY
  6. ADVAIR DISKUS 100/50 [Concomitant]
     Indication: ASTHMA
     Dosage: 500/50MCG 2 TIMES A DAY
  7. ALBUTEROL [Concomitant]
     Indication: ASTHMA
     Dosage: UNK
  8. COMBIVENT [Concomitant]
     Indication: ASTHMA
     Dosage: UNK

REACTIONS (13)
  - AMNESIA [None]
  - ASTHMA [None]
  - BREAKTHROUGH PAIN [None]
  - CATARACT [None]
  - DIZZINESS [None]
  - DRUG INEFFECTIVE [None]
  - HEADACHE [None]
  - IRRITABILITY [None]
  - PRURITUS [None]
  - RASH [None]
  - SWELLING [None]
  - THINKING ABNORMAL [None]
  - WEIGHT INCREASED [None]
